FAERS Safety Report 9985107 (Version 1)
Quarter: 2014Q1

REPORT INFORMATION
  Report Type: Report from Study
  Country: US (occurrence: US)
  Receive Date: 20140307
  Receipt Date: 20140307
  Transmission Date: 20141002
  Serious: No
  Sender: FDA-Public Use
  Company Number: US-ABBVIE-14P-163-1186639-00

PATIENT
  Age: 50 Year
  Sex: Female

DRUGS (11)
  1. HUMIRA [Suspect]
     Indication: PSORIASIS
     Dates: start: 20131125, end: 20131125
  2. HUMIRA [Suspect]
     Dates: start: 20131211
  3. METOFORMIN [Concomitant]
     Indication: DIABETES MELLITUS
  4. DILTIAZEM HCL EXTE-REL [Concomitant]
     Indication: HYPERTENSION
  5. NABUMETONE [Concomitant]
     Indication: ARTHRITIS
  6. FLUOXETINE [Concomitant]
     Indication: ANXIETY
  7. GABAPENTIN [Concomitant]
     Indication: MIGRAINE
  8. GABAPENTIN [Concomitant]
     Indication: PAIN
  9. GABAPENTIN [Concomitant]
     Indication: MYALGIA
  10. CLONIDINE [Concomitant]
     Indication: HYPERTENSION
  11. TYLENOL PM [Concomitant]
     Indication: INSOMNIA

REACTIONS (3)
  - Pain [Not Recovered/Not Resolved]
  - Inappropriate schedule of drug administration [Not Recovered/Not Resolved]
  - Psoriatic arthropathy [Not Recovered/Not Resolved]
